FAERS Safety Report 7421902-8 (Version None)
Quarter: 2011Q2

REPORT INFORMATION
  Report Type: 
  Country: None (occurrence: None)
  Receive Date: 20110418
  Receipt Date: 20110406
  Transmission Date: 20111010
  Serious: Yes (Hospitalization)
  Sender: FDA-Public Use
  Company Number: US-ELI_LILLY_AND_COMPANY-US201104002159

PATIENT
  Sex: Female

DRUGS (3)
  1. ZYPREXA [Suspect]
     Dosage: 10 MG, UNK
  2. ZYPREXA [Suspect]
     Dosage: 10 MG, QD
  3. ZYPREXA [Suspect]
     Dosage: 15 MG, QD

REACTIONS (3)
  - MALAISE [None]
  - HOSPITALISATION [None]
  - NERVOUSNESS [None]
